FAERS Safety Report 4962323-7 (Version None)
Quarter: 2006Q2

REPORT INFORMATION
  Report Type: 
  Country: None (occurrence: None)
  Receive Date: 20060404
  Receipt Date: 20060330
  Transmission Date: 20061013
  Serious: Yes (Life-Threatening)
  Sender: FDA-Public Use
  Company Number: 2006CG00602

PATIENT
  Age: 48 Year
  Sex: Female
  Weight: 40 kg

DRUGS (4)
  1. DIPRIVAN [Suspect]
     Indication: GENERAL ANAESTHESIA
     Route: 042
     Dates: start: 20060109, end: 20060109
  2. TRACRIUM [Suspect]
     Indication: GENERAL ANAESTHESIA
     Route: 042
     Dates: start: 20060109, end: 20060109
  3. TRACRIUM [Suspect]
     Route: 042
     Dates: start: 20060109, end: 20060109
  4. ULTIVA [Suspect]
     Indication: GENERAL ANAESTHESIA
     Route: 042
     Dates: start: 20060109, end: 20060109

REACTIONS (4)
  - ERYTHEMA [None]
  - HYPERHIDROSIS [None]
  - HYPOTENSION [None]
  - TACHYCARDIA [None]
